FAERS Safety Report 14201781 (Version 2)
Quarter: 2017Q4

REPORT INFORMATION
  Report Type: Spontaneous
  Country: US (occurrence: US)
  Receive Date: 20171117
  Receipt Date: 20171229
  Transmission Date: 20180321
  Serious: Yes (Other)
  Sender: FDA-Public Use
  Company Number: US-OMEROS CORPORATION-2017OME00023

PATIENT
  Age: 79 Year
  Sex: Female

DRUGS (13)
  1. ALCON BSS [Concomitant]
     Dosage: UNK, ONCE
     Dates: start: 20171017, end: 20171017
  2. VISCOAT [Concomitant]
     Dosage: UNK, ONCE
     Route: 031
     Dates: start: 20171017, end: 20171017
  3. SYNTHROID [Concomitant]
     Active Substance: LEVOTHYROXINE SODIUM
     Dosage: 75 ?G, AS DIRECTED
     Route: 048
  4. OFLOXACIN. [Concomitant]
     Active Substance: OFLOXACIN
     Dosage: UNK, 4X/DAY, BOTH EYES
     Route: 061
     Dates: start: 20171014
  5. PANTOPRAZOLE [Concomitant]
     Active Substance: PANTOPRAZOLE
     Dosage: 1 CAPSULES, AS DIRECTED
     Route: 048
  6. DUOVISC [Concomitant]
     Active Substance: CHONDROITIN SULFATE A\HYALURONATE SODIUM
     Dosage: UNK, ONCE
     Dates: start: 20171017, end: 20171017
  7. STERILE SALINE [Concomitant]
     Dosage: UNK, ONCE
     Dates: start: 20171017, end: 20171017
  8. MULTIVITAMIN [Concomitant]
     Active Substance: VITAMINS
  9. PRESERVATIVE FREE INTRAOCULAR LIDOCAINE [Concomitant]
     Dosage: 4 ML, ONCE
     Route: 031
     Dates: start: 20171017, end: 20171017
  10. OMIDRIA [Suspect]
     Active Substance: KETOROLAC\PHENYLEPHRINE
     Indication: CATARACT OPERATION
     Dosage: UNK, ONCE, RIGHT EYE
     Route: 031
     Dates: start: 20171017, end: 20171017
  11. OMIDRIA [Suspect]
     Active Substance: KETOROLAC\PHENYLEPHRINE
     Indication: INTRAOCULAR LENS IMPLANT
  12. KETOROLAC [Concomitant]
     Active Substance: KETOROLAC\KETOROLAC TROMETHAMINE
     Dosage: UNK, 4X/DAY, RIGHT EYE
     Dates: start: 20171014
  13. BETADINE [Concomitant]
     Active Substance: POVIDONE-IODINE
     Dosage: UNK UNK, ONCE
     Route: 061
     Dates: start: 20171017, end: 20171017

REACTIONS (5)
  - Blepharochalasis [Not Recovered/Not Resolved]
  - Toxic anterior segment syndrome [Not Recovered/Not Resolved]
  - Iritis [Not Recovered/Not Resolved]
  - Endophthalmitis [Not Recovered/Not Resolved]
  - Panophthalmitis [Not Recovered/Not Resolved]

NARRATIVE: CASE EVENT DATE: 20171019
